FAERS Safety Report 7736756-X (Version None)
Quarter: 2011Q3

REPORT INFORMATION
  Report Type: 
  Country: None (occurrence: None)
  Receive Date: 20110908
  Receipt Date: 20110902
  Transmission Date: 20111222
  Serious: Yes (Death, Hospitalization)
  Sender: FDA-Public Use
  Company Number: PHHY2011BR58485

PATIENT
  Sex: Male

DRUGS (3)
  1. DIOVAN HCT [Suspect]
  2. GALVUS [Suspect]
     Dosage: 50 MG, UNK
  3. EXFORGE HCT [Suspect]

REACTIONS (1)
  - ABDOMINAL DISCOMFORT [None]
